FAERS Safety Report 5548051-8 (Version None)
Quarter: 2007Q4

REPORT INFORMATION
  Report Type: 
  Country: None (occurrence: None)
  Receive Date: 20071211
  Receipt Date: 20070307
  Transmission Date: 20080405
  Serious: No
  Sender: FDA-Public Use
  Company Number: US-AMGEN-KDL214072

PATIENT
  Sex: Male

DRUGS (1)
  1. ENBREL [Suspect]
     Indication: ANKYLOSING SPONDYLITIS
     Route: 058
     Dates: start: 20070227

REACTIONS (6)
  - ARTHRALGIA [None]
  - DRY EYE [None]
  - DYSGEUSIA [None]
  - LYMPHADENOPATHY [None]
  - NIGHT SWEATS [None]
  - ORAL HERPES [None]
